FAERS Safety Report 10572408 (Version 4)
Quarter: 2015Q1

REPORT INFORMATION
  Report Type: Spontaneous
  Country: FR (occurrence: FR)
  Receive Date: 20141109
  Receipt Date: 20150330
  Transmission Date: 20150720
  Serious: Yes (Hospitalization)
  Sender: FDA-Public Use
  Company Number: FR-BRISTOL-MYERS SQUIBB COMPANY-19127570

PATIENT
  Age: 66 Year
  Sex: Male
  Weight: 64 kg

DRUGS (1)
  1. ORENCIA [Suspect]
     Active Substance: ABATACEPT
     Indication: RHEUMATIC DISORDER
     Dosage: 14-NOV-2012,13-DEC-2012,17-JAN-2013,20-MAR-2013,22-APR-2013
     Route: 042
     Dates: start: 20120928, end: 201305

REACTIONS (8)
  - Thrombocytopenia [Recovered/Resolved]
  - Upper respiratory tract infection [Unknown]
  - Solar dermatitis [Not Recovered/Not Resolved]
  - Eczema [Not Recovered/Not Resolved]
  - Urinary tract infection [Unknown]
  - Face oedema [Unknown]
  - Off label use [Unknown]
  - Oedema peripheral [Unknown]

NARRATIVE: CASE EVENT DATE: 20130529
